FAERS Safety Report 17941152 (Version 3)
Quarter: 2021Q3

REPORT INFORMATION
  Report Type: Report from Study
  Country: US (occurrence: US)
  Receive Date: 20200624
  Receipt Date: 20210719
  Transmission Date: 20211014
  Serious: No
  Sender: FDA-Public Use
  Company Number: US-AGIOS-2006US01970

PATIENT

DRUGS (11)
  1. INULIN [Concomitant]
     Active Substance: INULIN
  2. MELATONIN [Concomitant]
     Active Substance: MELATONIN
  3. TIBSOVO [Suspect]
     Active Substance: IVOSIDENIB
     Indication: ANAPLASTIC OLIGODENDROGLIOMA
     Dosage: 250 MILLIGRAM, 2 TABLETS (500 MG) DAILY
     Route: 048
     Dates: start: 20200425
  4. CORTEF [Concomitant]
     Active Substance: HYDROCORTISONE
  5. MULTIVITAMIN                       /00097801/ [Concomitant]
     Active Substance: VITAMINS
  6. GUAIFENESIN. [Concomitant]
     Active Substance: GUAIFENESIN
  7. ZOFRAN [Concomitant]
     Active Substance: ONDANSETRON HYDROCHLORIDE
  8. TIBSOVO [Suspect]
     Active Substance: IVOSIDENIB
     Dosage: 250 MILLIGRAM, 2 TABLETS (500 MG) DAILY
     Route: 048
     Dates: start: 20210412
  9. VITAMIN C [Concomitant]
     Active Substance: ASCORBIC ACID
  10. CALTRATE 600+D [Concomitant]
  11. TYLENOL [Concomitant]
     Active Substance: ACETAMINOPHEN

REACTIONS (8)
  - Fatigue [Unknown]
  - Dysphemia [Unknown]
  - Photophobia [Unknown]
  - Diarrhoea [Not Recovered/Not Resolved]
  - Disorganised speech [Unknown]
  - Tinnitus [Unknown]
  - Sleep disorder [Unknown]
  - Off label use [Unknown]

NARRATIVE: CASE EVENT DATE: 20200425
